FAERS Safety Report 4505487-1 (Version None)
Quarter: 2004Q4

REPORT INFORMATION
  Report Type: 
  Country: None (occurrence: None)
  Receive Date: 20041018
  Receipt Date: 20040810
  Transmission Date: 20050328
  Serious: No
  Sender: FDA-Public Use
  Company Number: 208335

PATIENT
  Age: 50 Year
  Sex: Female

DRUGS (1)
  1. XOLAIR [Suspect]
     Indication: ASTHMA
     Dosage: SUBCUTANEOUS
     Route: 058
     Dates: start: 20031101

REACTIONS (2)
  - DYSGEUSIA [None]
  - PAIN IN EXTREMITY [None]
